FAERS Safety Report 6521136-5 (Version None)
Quarter: 2009Q4

REPORT INFORMATION
  Report Type: 
  Country: None (occurrence: None)
  Receive Date: 20091222
  Receipt Date: 20091217
  Transmission Date: 20100525
  Serious: Yes (Death, Other)
  Sender: FDA-Public Use
  Company Number: 2009SP042093

PATIENT

DRUGS (1)
  1. INTEGRILIN [Suspect]
     Indication: DRUG USE FOR UNKNOWN INDICATION
     Dosage: ;IV
     Route: 042

REACTIONS (4)
  - CARDIAC ARREST [None]
  - CARDIOGENIC SHOCK [None]
  - HAEMORRHAGE [None]
  - INCORRECT DOSE ADMINISTERED [None]
